FAERS Safety Report 21014714 (Version 1)
Quarter: 2022Q2

REPORT INFORMATION
  Report Type: Spontaneous
  Country: US (occurrence: US)
  Receive Date: 20220628
  Receipt Date: 20220628
  Transmission Date: 20220720
  Serious: No
  Sender: FDA-Public Use
  Company Number: US-BRISTOL-MYERS SQUIBB COMPANY-BMS-2022-020067

PATIENT
  Age: 76 Year
  Sex: Female

DRUGS (8)
  1. REVLIMID [Suspect]
     Active Substance: LENALIDOMIDE
     Indication: Plasma cell myeloma
     Dosage: FREQ: TAKE 1 CAPSULE BY MOUTH ONCE DAILY ON DAYS 1-21, THEN OFF 7 DAYS OF A 28 DAY CYCLE.
     Route: 048
     Dates: start: 20220209
  2. VALACYCLOVIR [Concomitant]
     Active Substance: VALACYCLOVIR HYDROCHLORIDE
  3. ASPIRIN [Concomitant]
     Active Substance: ASPIRIN
  4. MAGNESIUM OXIDE [Concomitant]
     Active Substance: MAGNESIUM OXIDE
  5. MIRALAX [Concomitant]
     Active Substance: POLYETHYLENE GLYCOL 3350
  6. MORPHINE SULFATE [Concomitant]
     Active Substance: MORPHINE SULFATE
  7. TUMS ULTRA [Concomitant]
     Active Substance: CALCIUM CARBONATE
  8. URSODIOL [Concomitant]
     Active Substance: URSODIOL

REACTIONS (2)
  - Nasopharyngitis [Unknown]
  - Adverse event [Unknown]
